FAERS Safety Report 20758626 (Version 1)
Quarter: 2022Q2

REPORT INFORMATION
  Report Type: Spontaneous
  Country: US (occurrence: US)
  Receive Date: 20220427
  Receipt Date: 20220427
  Transmission Date: 20220721
  Serious: No
  Sender: FDA-Public Use
  Company Number: US-PFIZER INC-202101367515

PATIENT
  Age: 65 Year
  Sex: Female
  Weight: 45.36 kg

DRUGS (4)
  1. CHANTIX [Suspect]
     Active Substance: VARENICLINE TARTRATE
     Indication: Smoking cessation therapy
     Dosage: HALF IN THE MORNING AND HALF IN THE EVENING THEN DISCONTINUED TAKING IT AT NIGHT
     Dates: end: 202005
  2. CHANTIX [Suspect]
     Active Substance: VARENICLINE TARTRATE
     Dosage: 1 DF, 2X/DAY (TAKING A FULL TABLET TWICE A DAY)
  3. CHANTIX [Suspect]
     Active Substance: VARENICLINE TARTRATE
     Dosage: TAKING ONE TABLET IN THE MORNING AND HALF OF A TABLET AT NIGHT
  4. NICORETTE [Suspect]
     Active Substance: NICOTINE
     Indication: Smoking cessation therapy
     Dosage: 4 MG

REACTIONS (3)
  - Psychomotor hyperactivity [Unknown]
  - Insomnia [Unknown]
  - Gastrointestinal disorder [Unknown]
